FAERS Safety Report 20073604 (Version 2)
Quarter: 2021Q4

REPORT INFORMATION
  Report Type: Spontaneous
  Country: JP (occurrence: JP)
  Receive Date: 20211116
  Receipt Date: 20211222
  Transmission Date: 20220303
  Serious: Yes (Other)
  Sender: FDA-Public Use
  Company Number: JP-BAYER-2021A249665

PATIENT
  Age: 82 Year
  Sex: Male

DRUGS (1)
  1. XOFIGO [Suspect]
     Active Substance: RADIUM RA-223 DICHLORIDE
     Indication: Hormone-refractory prostate cancer
     Dosage: VIALS, 55KBQ/KG AT A TIME, GIVEN SLOWLY INTRAVENOUSLY UP TO 6 TIMES AT 4-WEEK INTERVALS

REACTIONS (1)
  - Hormone-refractory prostate cancer [Unknown]
